FAERS Safety Report 4505380-4 (Version None)
Quarter: 2004Q4

REPORT INFORMATION
  Report Type: 
  Country: None (occurrence: None)
  Receive Date: 20041015
  Receipt Date: 20040319
  Transmission Date: 20050328
  Serious: Yes (Other)
  Sender: FDA-Public Use
  Company Number: 2004019776

PATIENT
  Age: 56 Year
  Sex: Female
  Weight: 29.257 kg

DRUGS (6)
  1. NEURONTIN [Suspect]
     Indication: REFLEX SYMPATHETIC DYSTROPHY
     Dosage: 900 MG TID ORAL
     Route: 048
     Dates: start: 19960326, end: 20040204
  2. OXYCODONE HYDROCHLORIDE (OXYCODONE HYDROCHLORIDE) [Suspect]
     Indication: ILL-DEFINED DISORDER
  3. METHADONE HCL [Concomitant]
  4. VENLAFAXINE HYDROCHLORIDE [Concomitant]
  5. VICODIN [Concomitant]
  6. TRAZODONE HCL [Concomitant]

REACTIONS (5)
  - AMNESIA [None]
  - CONVULSION [None]
  - FEELING ABNORMAL [None]
  - NAUSEA [None]
  - UNEVALUABLE EVENT [None]
